FAERS Safety Report 7332992-5 (Version None)
Quarter: 2011Q1

REPORT INFORMATION
  Report Type: 
  Country: None (occurrence: None)
  Receive Date: 20110304
  Receipt Date: 20110222
  Transmission Date: 20110831
  Serious: Yes (Hospitalization)
  Sender: FDA-Public Use
  Company Number: AR-JNJFOC-20110208627

PATIENT
  Sex: Female
  Weight: 58 kg

DRUGS (13)
  1. METHOTREXATE [Suspect]
     Indication: RHEUMATOID ARTHRITIS
     Route: 048
  2. GOLIMUMAB [Suspect]
     Route: 058
  3. FOLIC ACID [Concomitant]
     Route: 048
  4. NAPROXEN [Concomitant]
     Route: 048
  5. GOLIMUMAB [Suspect]
     Indication: RHEUMATOID ARTHRITIS
     Route: 058
  6. METHOTREXATE [Concomitant]
     Route: 048
  7. IMIPRAMINE [Concomitant]
     Route: 048
  8. ALPRAZOLAM [Concomitant]
     Route: 048
  9. METHOTREXATE [Concomitant]
     Route: 048
  10. TROXERUTINA [Concomitant]
     Route: 048
  11. METHOTREXATE [Concomitant]
     Route: 048
  12. OMEPRAZOLE [Concomitant]
     Route: 048
  13. TIBOLONE [Concomitant]
     Route: 048

REACTIONS (1)
  - BREAST ABSCESS [None]
